FAERS Safety Report 10097253 (Version 1)
Quarter: 2014Q2

REPORT INFORMATION
  Report Type: Spontaneous
  Country: GB (occurrence: GB)
  Receive Date: 20140422
  Receipt Date: 20140422
  Transmission Date: 20141212
  Serious: Yes (Life-Threatening)
  Sender: FDA-Public Use
  Company Number: GB-TEVA-474378ISR

PATIENT
  Age: 76 Year
  Sex: 0

DRUGS (8)
  1. WARFARIN [Suspect]
     Indication: ATRIAL FIBRILLATION
     Dosage: DOSED AS PER INTERNATIONAL NORMALISED RATIO. ON WARFARIN PRIOR TO ADMISSION. START DATE NOT KNOWN.
     Route: 048
     Dates: end: 20140324
  2. ASPIRIN [Suspect]
     Indication: ACUTE CORONARY SYNDROME
     Dosage: 75 MILLIGRAM DAILY;
     Route: 050
     Dates: start: 20140325
  3. DALTEPARIN SODIUM [Suspect]
     Indication: ACUTE CORONARY SYNDROME
     Dosage: 18000 UNITS ONCE DAILY FOR 2 DOSES
     Route: 037
     Dates: start: 20140325, end: 20140327
  4. AMOXICILLIN [Concomitant]
     Indication: URINARY TRACT INFECTION
     Dosage: 1500 MILLIGRAM DAILY;
     Route: 048
     Dates: start: 20140327
  5. ATORVASTATIN [Concomitant]
     Indication: ACUTE CORONARY SYNDROME
     Dosage: 80 MILLIGRAM DAILY; AT NIGHT
     Route: 048
     Dates: start: 20140325
  6. DIGOXIN [Concomitant]
     Indication: ATRIAL FIBRILLATION
     Dosage: 125 MICROGRAM DAILY;
     Dates: start: 20140325
  7. OXYBUTYNIN [Concomitant]
     Dosage: 5 MILLIGRAM DAILY; STARTED PRIOR TO ADMISSION. NO START DATES AVAILABLE.
     Route: 048
  8. LEVOTHYROXINE [Concomitant]
     Dosage: 150 MICROGRAM DAILY;
     Route: 048

REACTIONS (3)
  - Extradural haematoma [Not Recovered/Not Resolved]
  - Subarachnoid haemorrhage [Not Recovered/Not Resolved]
  - International normalised ratio decreased [Unknown]
